FAERS Safety Report 21822872 (Version 1)
Quarter: 2023Q1

REPORT INFORMATION
  Report Type: Spontaneous
  Country: KR (occurrence: KR)
  Receive Date: 20230105
  Receipt Date: 20230105
  Transmission Date: 20230418
  Serious: Yes (Other)
  Sender: FDA-Public Use
  Company Number: KR-MYLANLABS-2022M1140958

PATIENT
  Age: 69 Year
  Sex: Female

DRUGS (8)
  1. PHENYTOIN [Interacting]
     Active Substance: PHENYTOIN
     Indication: Status epilepticus
     Dosage: 900 MILLIGRAM, QD
     Route: 042
  2. PHENYTOIN [Interacting]
     Active Substance: PHENYTOIN
     Dosage: 300 MILLIGRAM, QD
     Route: 042
  3. PHENYTOIN [Interacting]
     Active Substance: PHENYTOIN
     Dosage: 200 MILLIGRAM, QD
     Route: 042
  4. LEVETIRACETAM [Interacting]
     Active Substance: LEVETIRACETAM
     Indication: Status epilepticus
     Dosage: UNK
     Route: 065
  5. DONEPEZIL [Interacting]
     Active Substance: DONEPEZIL
     Indication: Dementia Alzheimer^s type
     Dosage: UNK
     Route: 065
  6. MEMANTINE [Concomitant]
     Active Substance: MEMANTINE
     Indication: Dementia Alzheimer^s type
     Dosage: UNK
     Route: 065
  7. CIPROFLOXACIN [Concomitant]
     Active Substance: CIPROFLOXACIN
     Indication: Urinary tract infection
     Dosage: 400 MILLIGRAM, QD
     Route: 065
  8. VALPROATE [Concomitant]
     Active Substance: VALPROIC ACID
     Indication: Status epilepticus
     Dosage: 800 MILLIGRAM, QD
     Route: 065

REACTIONS (2)
  - Drug interaction [Recovered/Resolved]
  - Tremor [Recovered/Resolved]
